FAERS Safety Report 7078290-9 (Version None)
Quarter: 2010Q4

REPORT INFORMATION
  Report Type: 
  Country: None (occurrence: None)
  Receive Date: 20101101
  Receipt Date: 20101101
  Transmission Date: 20110411
  Serious: Yes (Hospitalization)
  Sender: FDA-Public Use
  Company Number: None

PATIENT
  Age: 62 Year
  Sex: Female
  Weight: 104.3273 kg

DRUGS (1)
  1. CLONODINE .1 MG ACTAV ELIZ [Suspect]
     Indication: HYPERTENSION
     Dosage: ,3 THREE DAILY PO
     Route: 048
     Dates: start: 20100225, end: 20100715

REACTIONS (7)
  - ABDOMINAL PAIN UPPER [None]
  - CONSTIPATION [None]
  - DECREASED APPETITE [None]
  - ELECTROLYTE IMBALANCE [None]
  - IMPAIRED GASTRIC EMPTYING [None]
  - NAUSEA [None]
  - VOMITING [None]
